FAERS Safety Report 24810822 (Version 1)
Quarter: 2025Q1

REPORT INFORMATION
  Report Type: Spontaneous
  Country: US (occurrence: None)
  Receive Date: 20250106
  Receipt Date: 20250106
  Transmission Date: 20250409
  Serious: Yes (Hospitalization)
  Sender: FDA-CTU
  Company Number: None

PATIENT
  Sex: Female
  Weight: 58.51 kg

DRUGS (7)
  1. WINREVAIR [Suspect]
     Active Substance: SOTATERCEPT-CSRK
     Dosage: FREQUENCY : EVERY THREE WEEKS;?
     Route: 058
     Dates: start: 202406
  2. KEPPRA [Concomitant]
     Active Substance: LEVETIRACETAM
  3. TYLENOL [Concomitant]
     Active Substance: ACETAMINOPHEN
  4. ALLOPURINOL [Concomitant]
     Active Substance: ALLOPURINOL
  5. LANTUS [Concomitant]
     Active Substance: INSULIN GLARGINE
  6. CALCITRIOL [Concomitant]
     Active Substance: CALCITRIOL
  7. UPTRAVI [Concomitant]
     Active Substance: SELEXIPAG

REACTIONS (3)
  - Fall [None]
  - Skin discolouration [None]
  - Oedema peripheral [None]
